FAERS Safety Report 21301248 (Version 1)
Quarter: 2022Q3

REPORT INFORMATION
  Report Type: Spontaneous
  Country: US (occurrence: None)
  Receive Date: 20220906
  Receipt Date: 20220906
  Transmission Date: 20221026
  Serious: No
  Sender: FDA-Public Use
  Company Number: None

PATIENT
  Age: 31 Year
  Sex: Male
  Weight: 79.38 kg

DRUGS (1)
  1. RINVOQ [Suspect]
     Active Substance: UPADACITINIB
     Indication: Ankylosing spondylitis
     Dosage: TAKE 1 TABLET BY MOUTH DAILY  AS DIRECTED
     Route: 048
     Dates: start: 202208

REACTIONS (2)
  - Therapy interrupted [None]
  - COVID-19 [None]
